FAERS Safety Report 15375991 (Version 2)
Quarter: 2018Q3

REPORT INFORMATION
  Report Type: Spontaneous
  Country: US (occurrence: US)
  Receive Date: 20180912
  Receipt Date: 20180919
  Transmission Date: 20181010
  Serious: Yes (Other)
  Sender: FDA-Public Use
  Company Number: US-ASTRAZENECA-2018SF12733

PATIENT
  Age: 15405 Day
  Sex: Female
  Weight: 91.6 kg

DRUGS (16)
  1. FASENRA [Suspect]
     Active Substance: BENRALIZUMAB
     Indication: ASTHMA
     Route: 058
     Dates: start: 20180831, end: 20180831
  2. ALBUTEROL SULPHATE [Concomitant]
     Active Substance: ALBUTEROL
     Indication: COUGH
     Dosage: EVERY 4?6 HOURS AS NEEDED
     Route: 055
  3. ALBUTEROL SULPHATE [Concomitant]
     Active Substance: ALBUTEROL
     Indication: WHEEZING
     Dosage: EVERY 4?6 HOURS AS NEEDED
     Route: 055
  4. METOPROLOL TARTRATE. [Concomitant]
     Active Substance: METOPROLOL TARTRATE
  5. FLUTICASONE. [Concomitant]
     Active Substance: FLUTICASONE
     Dosage: 1?2 SPRAY DAILY
     Route: 045
  6. ZYRTEC [Concomitant]
     Active Substance: CETIRIZINE HYDROCHLORIDE
     Route: 048
  7. AZELASTINE HYDROCHLORIDE. [Concomitant]
     Active Substance: AZELASTINE HYDROCHLORIDE
     Dosage: 2 SPRAY EACH NOSTRIL TWICE DAILY
     Route: 045
  8. EPINEPHRINE. [Concomitant]
     Active Substance: EPINEPHRINE
     Indication: HYPERSENSITIVITY
     Dosage: 0.3 MG/0.3ML
     Route: 065
  9. ALBUTEROL SULPHATE [Concomitant]
     Active Substance: ALBUTEROL
     Indication: DYSPNOEA
     Dosage: EVERY 4?6 HOURS AS NEEDED
     Route: 055
  10. SYMBICORT [Suspect]
     Active Substance: BUDESONIDE\FORMOTEROL FUMARATE DIHYDRATE
     Indication: ASTHMA
     Dosage: 160?4.5 MCG TWO TIMES A DAY
     Route: 055
  11. SINGULAIR [Concomitant]
     Active Substance: MONTELUKAST SODIUM
     Route: 048
  12. ALBUTEROL SULPHATE [Concomitant]
     Active Substance: ALBUTEROL
     Indication: CHEST DISCOMFORT
     Dosage: EVERY 4?6 HOURS AS NEEDED
     Route: 055
  13. PROAIR HFA [Concomitant]
     Active Substance: ALBUTEROL SULFATE
     Dosage: 108 MCG2 PUFFS EVERY 4 HOURS AS NEEDED
     Route: 055
  14. ALOMIDE [Concomitant]
     Active Substance: LODOXAMIDE TROMETHAMINE
  15. QVAR [Concomitant]
     Active Substance: BECLOMETHASONE DIPROPIONATE
     Dosage: 80 MCG 2 INHALATION DAILY AS NEEDED
     Route: 055
  16. OLOPATADINE HYDROCHLORIDE. [Concomitant]
     Active Substance: OLOPATADINE HYDROCHLORIDE
     Dosage: ONE DROP DAILY AS NEEDED
     Route: 065

REACTIONS (8)
  - Ear pruritus [Recovered/Resolved]
  - Feeling abnormal [Unknown]
  - Nausea [Recovered/Resolved]
  - Pharyngeal mass [Recovered/Resolved]
  - Throat irritation [Recovered/Resolved]
  - Crying [Recovered/Resolved]
  - Tremor [Recovered/Resolved]
  - Blood pressure abnormal [Unknown]

NARRATIVE: CASE EVENT DATE: 20180831
